FAERS Safety Report 18675311 (Version 1)
Quarter: 2020Q4

REPORT INFORMATION
  Report Type: Spontaneous
  Country: US (occurrence: US)
  Receive Date: 20201228
  Receipt Date: 20201228
  Transmission Date: 20210114
  Serious: Yes (Other)
  Sender: FDA-Public Use
  Company Number: None

PATIENT
  Age: 35 Year
  Sex: Female
  Weight: 60.75 kg

DRUGS (4)
  1. WOMENS MULTIVITAMIN [Concomitant]
  2. SINGULAIR [Suspect]
     Active Substance: MONTELUKAST SODIUM
     Indication: HYPERSENSITIVITY
     Dates: start: 20190714, end: 20201222
  3. LOESTRINE FE [Concomitant]
  4. LYSINE [Concomitant]
     Active Substance: LYSINE

REACTIONS (2)
  - Abnormal behaviour [None]
  - Depression [None]

NARRATIVE: CASE EVENT DATE: 20201101
